FAERS Safety Report 7965256-7 (Version None)
Quarter: 2011Q4

REPORT INFORMATION
  Report Type: 
  Country: None (occurrence: None)
  Receive Date: 20111208
  Receipt Date: 20111201
  Transmission Date: 20120403
  Serious: Yes (Death)
  Sender: FDA-Public Use
  Company Number: US-BAYER-201032765NA

PATIENT
  Age: 22 Year
  Sex: Female

DRUGS (7)
  1. CALCIUM [Concomitant]
  2. VITAMIN D [Concomitant]
  3. ASCORBIC ACID [Concomitant]
  4. DARVOCET [Concomitant]
  5. MULTIVITAMINS, COMBINATIONS [Concomitant]
  6. PAROXETINE HCL [Concomitant]
  7. YAZ [Suspect]
     Dosage: UNK UNK, UNK
     Route: 048
     Dates: start: 20080409

REACTIONS (2)
  - PULMONARY EMBOLISM [None]
  - DEEP VEIN THROMBOSIS [None]
